FAERS Safety Report 6685193-8 (Version None)
Quarter: 2010Q2

REPORT INFORMATION
  Report Type: 
  Country: None (occurrence: None)
  Receive Date: 20100416
  Receipt Date: 20100406
  Transmission Date: 20101027
  Serious: Yes (Hospitalization, Disabling)
  Sender: FDA-Public Use
  Company Number: FR-ALLERGAN-1004867US

PATIENT
  Age: 84 Year
  Sex: Female

DRUGS (13)
  1. TROSPIUM CHLORIDE [Suspect]
     Indication: DRUG USE FOR UNKNOWN INDICATION
     Dosage: 20 MG, UNK
     Route: 048
  2. SERESTA [Suspect]
     Indication: DRUG USE FOR UNKNOWN INDICATION
  3. EFFEXOR [Suspect]
     Indication: DRUG USE FOR UNKNOWN INDICATION
  4. LEXOMIL [Suspect]
     Indication: DRUG USE FOR UNKNOWN INDICATION
     Dosage: 12 MG, UNK
  5. OFLOCET [Suspect]
  6. COAPROVEL [Concomitant]
     Indication: DRUG USE FOR UNKNOWN INDICATION
  7. AMLOR [Concomitant]
  8. HYPERIUM [Concomitant]
  9. TAHOR [Concomitant]
     Indication: DRUG USE FOR UNKNOWN INDICATION
  10. LEVOTHYROX [Concomitant]
     Indication: DRUG USE FOR UNKNOWN INDICATION
  11. PREVISCAN [Concomitant]
     Indication: DRUG USE FOR UNKNOWN INDICATION
  12. HEMIGOXINE [Concomitant]
     Indication: DRUG USE FOR UNKNOWN INDICATION
  13. SPECIAFOLDINE [Concomitant]
     Indication: DRUG USE FOR UNKNOWN INDICATION

REACTIONS (2)
  - CONFUSIONAL STATE [None]
  - SEPTIC SHOCK [None]
